FAERS Safety Report 5513599-9 (Version None)
Quarter: 2007Q4

REPORT INFORMATION
  Report Type: 
  Country: None (occurrence: None)
  Receive Date: 20071112
  Receipt Date: 20071105
  Transmission Date: 20080405
  Serious: Yes (Hospitalization)
  Sender: FDA-Public Use
  Company Number: RO-BOEHRINGER INGELHEIM PHARMACEUTICALS, INC.-2007-AP-00113AP

PATIENT
  Sex: Male
  Weight: 72 kg

DRUGS (5)
  1. TIPRANAVIR + RITONAVIR CO-ADMIN [Suspect]
     Indication: HIV INFECTION
     Dosage: TIPRANAVIR/NORVIR: STRENGTH 250MG/100MG; DAILY DOSE: 1000MG/400MG
     Route: 048
     Dates: start: 20060710, end: 20070309
  2. VIDEX [Concomitant]
     Indication: HIV INFECTION
     Route: 048
     Dates: start: 20060710, end: 20070309
  3. ZIAGEN [Concomitant]
     Indication: HIV INFECTION
     Route: 048
     Dates: start: 20060710, end: 20070309
  4. BISEPTOL [Concomitant]
     Route: 048
     Dates: start: 20060710, end: 20070309
  5. ESSENTIALE FORTE [Concomitant]
     Route: 048
     Dates: start: 20060710, end: 20070309

REACTIONS (2)
  - CYTOLYTIC HEPATITIS [None]
  - DRUG TOXICITY [None]
